FAERS Safety Report 9115682 (Version 1)
Quarter: 2013Q1

REPORT INFORMATION
  Report Type: Spontaneous
  Country: US (occurrence: US)
  Receive Date: 20130225
  Receipt Date: 20130225
  Transmission Date: 20140127
  Serious: No
  Sender: FDA-Public Use
  Company Number: US-PFIZER INC-2013066617

PATIENT
  Sex: Female

DRUGS (5)
  1. LIPITOR [Suspect]
     Indication: BLOOD CHOLESTEROL
     Dosage: UNK
  2. SIMVASTATIN [Suspect]
     Indication: BLOOD CHOLESTEROL
     Dosage: UNK
  3. LOVASTATIN [Suspect]
     Indication: BLOOD CHOLESTEROL
     Dosage: UNK
  4. CRESTOR [Suspect]
     Indication: BLOOD CHOLESTEROL
     Dosage: UNK
  5. PRAVACHOL [Suspect]
     Indication: BLOOD CHOLESTEROL
     Dosage: UNK

REACTIONS (4)
  - Drug ineffective [Unknown]
  - Chest pain [Unknown]
  - Dizziness [Unknown]
  - Malaise [Unknown]
